FAERS Safety Report 18795354 (Version 3)
Quarter: 2021Q1

REPORT INFORMATION
  Report Type: Report from Study
  Country: CO (occurrence: CO)
  Receive Date: 20210127
  Receipt Date: 20210216
  Transmission Date: 20210419
  Serious: Yes (Other)
  Sender: FDA-Public Use
  Company Number: NVSC2021CO016247

PATIENT
  Sex: Female

DRUGS (2)
  1. OMNITROPE [Suspect]
     Active Substance: SOMATROPIN
     Indication: GROWTH HORMONE DEFICIENCY
     Dosage: QD
     Route: 058
     Dates: start: 20190228
  2. OMNITROPE [Suspect]
     Active Substance: SOMATROPIN
     Dosage: QD
     Route: 058
     Dates: start: 201902

REACTIONS (4)
  - Growth retardation [Unknown]
  - Underweight [Unknown]
  - Weight decreased [Unknown]
  - Drug ineffective [Unknown]
